FAERS Safety Report 6366501-4 (Version None)
Quarter: 2009Q3

REPORT INFORMATION
  Report Type: 
  Country: None (occurrence: None)
  Receive Date: 20090921
  Receipt Date: 20090910
  Transmission Date: 20100115
  Serious: Yes (Other)
  Sender: FDA-Public Use
  Company Number: US-JNJFOC-20090903747

PATIENT
  Sex: Female
  Weight: 72.12 kg

DRUGS (12)
  1. REMICADE [Suspect]
     Indication: RHEUMATOID ARTHRITIS
     Route: 042
     Dates: start: 20090501
  2. FLAXSEED OIL [Concomitant]
  3. GARLIC SUPPLEMENT [Concomitant]
  4. VITAMIN D [Concomitant]
  5. VITAMIN B COMPLEX CAP [Concomitant]
  6. MULTIPLE VITAMIN [Concomitant]
  7. CALCIUM [Concomitant]
     Indication: RHEUMATOID ARTHRITIS
  8. REQUIP [Concomitant]
     Indication: RESTLESS LEGS SYNDROME
  9. LORAZEPAM [Concomitant]
     Indication: PANIC ATTACK
  10. CITALOPRAM HYDROBROMIDE [Concomitant]
     Indication: DEPRESSION
  11. TEMAZEPAM [Concomitant]
     Indication: INSOMNIA
  12. TRAMADOL HCL [Concomitant]
     Indication: PAIN

REACTIONS (2)
  - DRUG INEFFECTIVE [None]
  - WEIGHT INCREASED [None]
